FAERS Safety Report 16005808 (Version 4)
Quarter: 2019Q1

REPORT INFORMATION
  Report Type: Spontaneous
  Country: US (occurrence: US)
  Receive Date: 20190226
  Receipt Date: 20190306
  Transmission Date: 20190418
  Serious: Yes (Hospitalization, Other)
  Sender: FDA-Public Use
  Company Number: US-GLAXOSMITHKLINE-US2019GSK032139

PATIENT
  Sex: Female

DRUGS (13)
  1. PROZAC [Suspect]
     Active Substance: FLUOXETINE HYDROCHLORIDE
  2. LITHIUM. [Suspect]
     Active Substance: LITHIUM
  3. THIOTHIXENE. [Suspect]
     Active Substance: THIOTHIXENE
  4. NAVANE [Suspect]
     Active Substance: THIOTHIXENE
  5. LAMICTAL [Suspect]
     Active Substance: LAMOTRIGINE
     Indication: PRODUCT USED FOR UNKNOWN INDICATION
  6. THORAZINE [Suspect]
     Active Substance: CHLORPROMAZINE
  7. WELLBUTRIN [Suspect]
     Active Substance: BUPROPION HYDROCHLORIDE
     Indication: PRODUCT USED FOR UNKNOWN INDICATION
  8. ZOLOFT [Suspect]
     Active Substance: SERTRALINE HYDROCHLORIDE
  9. ABILIFY [Suspect]
     Active Substance: ARIPIPRAZOLE
  10. SEROQUEL [Suspect]
     Active Substance: QUETIAPINE FUMARATE
  11. TRIAVIL [Suspect]
     Active Substance: AMITRIPTYLINE HYDROCHLORIDE\PERPHENAZINE
  12. DEPAKOTE [Suspect]
     Active Substance: DIVALPROEX SODIUM
  13. PAXIL [Suspect]
     Active Substance: PAROXETINE HYDROCHLORIDE

REACTIONS (5)
  - Nightmare [Unknown]
  - Overdose [Recovered/Resolved]
  - Suicide attempt [Recovered/Resolved]
  - Suicidal ideation [Unknown]
  - Negative thoughts [Unknown]
